FAERS Safety Report 15726925 (Version 3)
Quarter: 2019Q1

REPORT INFORMATION
  Report Type: Spontaneous
  Country: JP (occurrence: JP)
  Receive Date: 20181217
  Receipt Date: 20190314
  Transmission Date: 20190417
  Serious: Yes (Hospitalization)
  Sender: FDA-Public Use
  Company Number: JP-AMGEN-JPNSP2018175025

PATIENT
  Age: 55 Year
  Sex: Female

DRUGS (12)
  1. CARBOPLATIN. [Concomitant]
     Active Substance: CARBOPLATIN
     Dosage: 365.96 MG, NINTH COURSE
     Route: 041
     Dates: start: 20181114
  2. DOCETAXEL. [Concomitant]
     Active Substance: DOCETAXEL
     Indication: FALLOPIAN TUBE CANCER
     Dosage: UNK, 1 TO 8 COURSES
     Route: 041
  3. NEUROTROPIN [Concomitant]
     Active Substance: NEUROTROPIN
     Indication: NEURALGIA
     Dosage: 4 UNITS, TID
     Route: 048
  4. DOCETAXEL. [Concomitant]
     Active Substance: DOCETAXEL
     Dosage: 115.57 MG, NINTH COURSE
     Route: 041
     Dates: start: 20181114
  5. DEXART [Concomitant]
     Active Substance: DEXAMETHASONE SODIUM PHOSPHATE
     Indication: FALLOPIAN TUBE CANCER
     Dosage: 6.6 MG
     Route: 042
     Dates: start: 20181114
  6. EMEND [Concomitant]
     Active Substance: APREPITANT
     Indication: FALLOPIAN TUBE CANCER
     Dosage: 125 MG, QD
     Route: 048
     Dates: start: 20181114, end: 20181114
  7. TRAMAL [Concomitant]
     Active Substance: TRAMADOL
     Indication: PAIN
     Dosage: 25 MG, QID
     Route: 048
  8. G-LASTA [Suspect]
     Active Substance: PEGFILGRASTIM
     Indication: PRODUCT USED FOR UNKNOWN INDICATION
     Dosage: 3.6 MG, UNK
     Route: 058
     Dates: start: 20181115
  9. CARBOPLATIN. [Concomitant]
     Active Substance: CARBOPLATIN
     Indication: FALLOPIAN TUBE CANCER
     Dosage: UNK 1 TO 8 COURSES
     Route: 041
  10. EMEND [Concomitant]
     Active Substance: APREPITANT
     Dosage: 80 MG, QD
     Route: 048
     Dates: start: 20181115, end: 20181117
  11. GRANISETRON [Concomitant]
     Active Substance: GRANISETRON
     Indication: FALLOPIAN TUBE CANCER
     Dosage: 3 MG, UNK
     Route: 042
     Dates: start: 20181114
  12. FOLIAMIN [Concomitant]
     Active Substance: FOLIC ACID
     Indication: FOLATE DEFICIENCY
     Dosage: 5 MG, BID
     Route: 048

REACTIONS (1)
  - Pyrexia [Recovered/Resolved]

NARRATIVE: CASE EVENT DATE: 20181125
